FAERS Safety Report 8314367-5 (Version None)
Quarter: 2012Q2

REPORT INFORMATION
  Report Type: 
  Country: None (occurrence: None)
  Receive Date: 20120426
  Receipt Date: 20120417
  Transmission Date: 20120825
  Serious: Yes (Hospitalization, Other)
  Sender: FDA-Public Use
  Company Number: US-ASTRAZENECA-2012SE25342

PATIENT
  Age: 77 Year
  Sex: Female
  Weight: 72.6 kg

DRUGS (13)
  1. LORAZEPAM [Concomitant]
  2. TRIFLUOPERAZINE HCL [Concomitant]
  3. BROMOCRIPTINE MESYLATE [Concomitant]
  4. LEVOTHYROXINE SODIUM [Concomitant]
  5. DOC-Q-ALCE [Concomitant]
  6. ASA-LOW EC [Concomitant]
  7. CALCIUM [Concomitant]
  8. NAMENDA [Concomitant]
  9. SEROQUEL [Suspect]
     Indication: SCHIZOPHRENIA
     Route: 048
     Dates: start: 20020101
  10. HYDROCHLOROTHIAZIDE [Concomitant]
  11. MULTI-VITAMINS [Concomitant]
  12. CITALOPRAM HYDROBROMIDE [Concomitant]
  13. PRAVASTATIN SODIUM [Concomitant]

REACTIONS (1)
  - DEMENTIA [None]
